FAERS Safety Report 6120132-X (Version None)
Quarter: 2009Q1

REPORT INFORMATION
  Report Type: 
  Country: None (occurrence: None)
  Receive Date: 20090316
  Receipt Date: 20090311
  Transmission Date: 20090719
  Serious: Yes (Other)
  Sender: FDA-Public Use
  Company Number: JP-MERCK-0903USA00289

PATIENT
  Age: 25 Year
  Sex: Female

DRUGS (3)
  1. TIMOPTIC [Suspect]
     Indication: GLAUCOMA
     Route: 047
  2. LATANOPROST [Concomitant]
     Indication: GLAUCOMA
     Route: 047
  3. BRINZOLAMIDE [Concomitant]
     Indication: GLAUCOMA
     Route: 047

REACTIONS (1)
  - DRUG EFFECT DECREASED [None]
